FAERS Safety Report 17839749 (Version 35)
Quarter: 2025Q1

REPORT INFORMATION
  Report Type: Report from Study
  Country: US (occurrence: US)
  Receive Date: 20200529
  Receipt Date: 20250301
  Transmission Date: 20250409
  Serious: Yes (Other)
  Sender: TAKEDA
  Company Number: US-SHIRE-US202017553

PATIENT
  Sex: Female
  Weight: 56 kg

DRUGS (41)
  1. HUMAN IMMUNOGLOBULIN G [Suspect]
     Active Substance: HUMAN IMMUNOGLOBULIN G
     Indication: Immunodeficiency common variable
     Dosage: 22 GRAM, Q3WEEKS
     Dates: start: 20200506
  2. HUMAN IMMUNOGLOBULIN G [Suspect]
     Active Substance: HUMAN IMMUNOGLOBULIN G
     Dosage: 22 GRAM, Q3WEEKS
  3. EPINEPHRINE [Concomitant]
     Active Substance: EPINEPHRINE
  4. ACETAMINOPHEN [Concomitant]
     Active Substance: ACETAMINOPHEN
  5. SODIUM BICARBONATE\SODIUM CHLORIDE [Concomitant]
     Active Substance: SODIUM BICARBONATE\SODIUM CHLORIDE
  6. PEPCID AC [Concomitant]
     Active Substance: FAMOTIDINE
  7. Nac [Concomitant]
  8. NASACORT [Concomitant]
     Active Substance: TRIAMCINOLONE ACETONIDE
  9. VALTREX [Concomitant]
     Active Substance: VALACYCLOVIR HYDROCHLORIDE
  10. PROZAC [Concomitant]
     Active Substance: FLUOXETINE HYDROCHLORIDE
  11. VOLTAREN ARTHRITIS PAIN [Concomitant]
     Active Substance: DICLOFENAC SODIUM
  12. ARMOUR THYROID [Concomitant]
     Active Substance: THYROID, PORCINE
  13. SODIUM CHLORIDE [Concomitant]
     Active Substance: SODIUM CHLORIDE
  14. CLONAZEPAM [Concomitant]
     Active Substance: CLONAZEPAM
  15. LIDOCAINE [Concomitant]
     Active Substance: LIDOCAINE
  16. ALPHA LIPOIC ACID [Concomitant]
     Active Substance: .ALPHA.-LIPOIC ACID
  17. Omega [Concomitant]
  18. FLAXSEED [Concomitant]
     Active Substance: FLAX SEED
  19. MUCINEX [Concomitant]
     Active Substance: GUAIFENESIN
  20. GLUTATHIONE [Concomitant]
     Active Substance: GLUTATHIONE
  21. MUPIROCIN [Concomitant]
     Active Substance: MUPIROCIN
  22. TOPAMAX [Concomitant]
     Active Substance: TOPIRAMATE
  23. VITAMIN B [Concomitant]
     Active Substance: VITAMIN B
  24. VITAMIN D3 [Concomitant]
     Active Substance: CHOLECALCIFEROL
  25. DIPHENHYDRAMINE HYDROCHLORIDE [Concomitant]
     Active Substance: DIPHENHYDRAMINE HYDROCHLORIDE
  26. ZINC [Concomitant]
     Active Substance: ZINC
  27. SODIUM CHLORIDE [Concomitant]
     Active Substance: SODIUM CHLORIDE
  28. MAGNESIUM OXIDE [Concomitant]
     Active Substance: MAGNESIUM OXIDE
  29. TRIAMCINOLONE ACETONIDE [Concomitant]
     Active Substance: TRIAMCINOLONE ACETONIDE
  30. LYSINE [Concomitant]
     Active Substance: LYSINE
  31. HEPARIN [Concomitant]
     Active Substance: HEPARIN SODIUM
  32. Lmx [Concomitant]
  33. RHINOCORT [Concomitant]
     Active Substance: BUDESONIDE
  34. CLARITIN [Concomitant]
     Active Substance: LORATADINE
  35. CALCIUM CARBONATE [Concomitant]
     Active Substance: CALCIUM CARBONATE
  36. NATURE-THROID [Concomitant]
     Active Substance: THYROID, PORCINE
  37. POTASSIUM CHLORIDE [Concomitant]
     Active Substance: POTASSIUM CHLORIDE
  38. CALCIUM [Concomitant]
     Active Substance: CALCIUM
  39. MAGNESIUM CITRATE [Concomitant]
     Active Substance: MAGNESIUM CITRATE
  40. SUDAFED [Concomitant]
     Active Substance: PSEUDOEPHEDRINE HYDROCHLORIDE
  41. VALIUM [Concomitant]
     Active Substance: DIAZEPAM

REACTIONS (41)
  - Haemorrhage [Unknown]
  - Infusion related reaction [Unknown]
  - Pain in jaw [Unknown]
  - Neck pain [Unknown]
  - Urinary tract infection [Unknown]
  - Dehydration [Unknown]
  - COVID-19 [Unknown]
  - Nasopharyngitis [Unknown]
  - Seasonal allergy [Unknown]
  - Joint swelling [Unknown]
  - Respiratory tract infection [Unknown]
  - Cystitis [Unknown]
  - Viral infection [Unknown]
  - Obstruction [Unknown]
  - Upper-airway cough syndrome [Unknown]
  - Taste disorder [Unknown]
  - Facial pain [Unknown]
  - Sinus congestion [Unknown]
  - Paranasal sinus discomfort [Unknown]
  - Oral herpes [Unknown]
  - Fungal infection [Unknown]
  - Nerve compression [Unknown]
  - Sinusitis [Unknown]
  - Upper respiratory tract infection [Unknown]
  - Photophobia [Unknown]
  - Nasal congestion [Unknown]
  - Rhinorrhoea [Unknown]
  - Asthenia [Unknown]
  - Lymphadenopathy [Unknown]
  - Pain [Unknown]
  - Eye pain [Unknown]
  - Rash [Unknown]
  - Pain in extremity [Unknown]
  - Paraesthesia [Unknown]
  - Arthralgia [Unknown]
  - Diarrhoea [Unknown]
  - Hypotension [Unknown]
  - Dizziness [Unknown]
  - Nausea [Unknown]
  - Headache [Unknown]
  - Fatigue [Unknown]
